FAERS Safety Report 17574937 (Version 1)
Quarter: 2020Q1

REPORT INFORMATION
  Report Type: Spontaneous
  Country: FR (occurrence: FR)
  Receive Date: 20200324
  Receipt Date: 20200324
  Transmission Date: 20200409
  Serious: Yes (Hospitalization)
  Sender: FDA-Public Use
  Company Number: FR-AUROBINDO-AUR-APL-2020-013733

PATIENT
  Age: 84 Year
  Sex: Female
  Weight: 39 kg

DRUGS (1)
  1. PAROXETINE ARROW 20 MG FILM-COATED TABLETS [Suspect]
     Active Substance: PAROXETINE
     Indication: DEPRESSION
     Dosage: 1 DOSAGE FORM
     Route: 048
     Dates: start: 20200204, end: 20200207

REACTIONS (2)
  - Extrapyramidal disorder [Recovering/Resolving]
  - Myoclonus [Recovering/Resolving]

NARRATIVE: CASE EVENT DATE: 20200207
